APPROVED DRUG PRODUCT: NIASPAN
Active Ingredient: NIACIN
Strength: 375MG
Dosage Form/Route: TABLET, EXTENDED RELEASE;ORAL
Application: N020381 | Product #001
Applicant: ABBVIE INC
Approved: Jul 28, 1997 | RLD: No | RS: No | Type: DISCN